FAERS Safety Report 7732895-8 (Version None)
Quarter: 2011Q3

REPORT INFORMATION
  Report Type: 
  Country: None (occurrence: None)
  Receive Date: 20110907
  Receipt Date: 20110824
  Transmission Date: 20111222
  Serious: Yes (Other)
  Sender: FDA-Public Use
  Company Number: US-JNJFOC-20110812961

PATIENT
  Sex: Female
  Weight: 81.65 kg

DRUGS (8)
  1. TOPIRAMATE [Suspect]
     Indication: MIGRAINE
     Route: 048
     Dates: start: 20050101, end: 20110101
  2. TOPIRAMATE [Suspect]
     Route: 048
     Dates: start: 20110101, end: 20110627
  3. TOPIRAMATE [Suspect]
     Indication: CONVULSION
     Route: 048
     Dates: start: 20050101, end: 20110101
  4. TOPIRAMATE [Suspect]
     Route: 048
     Dates: start: 20110627, end: 20110701
  5. TOPIRAMATE [Suspect]
     Route: 048
     Dates: start: 20110701
  6. TOPIRAMATE [Suspect]
     Route: 048
     Dates: start: 20110627, end: 20110701
  7. TOPIRAMATE [Suspect]
     Route: 048
     Dates: start: 20110101, end: 20110627
  8. TOPIRAMATE [Suspect]
     Route: 048
     Dates: start: 20110701

REACTIONS (15)
  - ABNORMAL LOSS OF WEIGHT [None]
  - ANXIETY [None]
  - HEART RATE INCREASED [None]
  - FEELING ABNORMAL [None]
  - DECREASED APPETITE [None]
  - INSOMNIA [None]
  - WRONG TECHNIQUE IN DRUG USAGE PROCESS [None]
  - FEAR [None]
  - MEDICATION ERROR [None]
  - ACCIDENTAL EXPOSURE [None]
  - CONVULSION [None]
  - UPPER RESPIRATORY TRACT INFECTION [None]
  - NERVOUSNESS [None]
  - TREMOR [None]
  - FATIGUE [None]
